FAERS Safety Report 17818058 (Version 1)
Quarter: 2020Q2

REPORT INFORMATION
  Report Type: Other
  Country: US (occurrence: US)
  Receive Date: 20200522
  Receipt Date: 20200522
  Transmission Date: 20200714
  Serious: No
  Sender: FDA-Public Use
  Company Number: US-LEADIANT BIOSCIENCES, INC.-2020STPI000008

PATIENT

DRUGS (5)
  1. IRON [Concomitant]
     Active Substance: IRON
  2. BACTRIM DS [Concomitant]
     Active Substance: SULFAMETHOXAZOLE\TRIMETHOPRIM
  3. REVCOVI [Suspect]
     Active Substance: ELAPEGADEMASE-LVLR
     Indication: COMBINED IMMUNODEFICIENCY
     Dosage: 0.5 MILLILITER, BIW
     Route: 030
     Dates: start: 20190306
  4. GRISEOFULVIN. [Concomitant]
     Active Substance: GRISEOFULVIN
  5. SMZ-TMP [Concomitant]
     Active Substance: SULFAMETHOXAZOLE\TRIMETHOPRIM

REACTIONS (1)
  - Nasopharyngitis [Not Recovered/Not Resolved]

NARRATIVE: CASE EVENT DATE: 202001
